FAERS Safety Report 7022230-5 (Version None)
Quarter: 2010Q3

REPORT INFORMATION
  Report Type: 
  Country: None (occurrence: None)
  Receive Date: 20100930
  Receipt Date: 20100920
  Transmission Date: 20110219
  Serious: Yes (Hospitalization)
  Sender: FDA-Public Use
  Company Number: GB-BAXTER-2010BH003341

PATIENT
  Age: 40 Year
  Sex: Male

DRUGS (4)
  1. CYCLOPHOSPHAMIDE [Suspect]
     Indication: COLON CANCER
     Route: 042
     Dates: start: 20100118, end: 20100119
  2. FLUDARABINE [Suspect]
     Indication: COLON CANCER
     Route: 042
     Dates: start: 20100120, end: 20100124
  3. MFEZ [Suspect]
     Indication: COLON CANCER
     Route: 042
     Dates: start: 20100121, end: 20100121
  4. ALDESLEUKIN [Suspect]
     Indication: COLON CANCER
     Route: 042
     Dates: start: 20100125, end: 20100129

REACTIONS (2)
  - OXYGEN SATURATION DECREASED [None]
  - RESPIRATORY RATE INCREASED [None]
